FAERS Safety Report 4982345-X (Version None)
Quarter: 2006Q2

REPORT INFORMATION
  Report Type: 
  Country: None (occurrence: None)
  Receive Date: 20060424
  Receipt Date: 20060424
  Transmission Date: 20061013
  Serious: Yes (Life-Threatening, Hospitalization, Disabling)
  Sender: FDA-Public Use
  Company Number: None

PATIENT
  Age: 36 Year
  Sex: Male
  Weight: 74.8435 kg

DRUGS (3)
  1. LEXAPRO [Suspect]
     Indication: ANXIETY
     Dosage: 20 MG ONCE DAILY PO
     Route: 048
     Dates: start: 20021111, end: 20060228
  2. LEXAPRO [Suspect]
     Indication: MAJOR DEPRESSION
     Dosage: 20 MG ONCE DAILY PO
     Route: 048
     Dates: start: 20021111, end: 20060228
  3. LEXAPRO [Suspect]
     Indication: PANIC ATTACK
     Dosage: 20 MG ONCE DAILY PO
     Route: 048
     Dates: start: 20021111, end: 20060228

REACTIONS (5)
  - ALCOHOL USE [None]
  - LOSS OF CONSCIOUSNESS [None]
  - MULTIPLE DRUG OVERDOSE INTENTIONAL [None]
  - RESPIRATORY ARREST [None]
  - SUICIDE ATTEMPT [None]
